FAERS Safety Report 16573953 (Version 2)
Quarter: 2019Q3

REPORT INFORMATION
  Report Type: Spontaneous
  Country: IT (occurrence: IT)
  Receive Date: 20190715
  Receipt Date: 20190930
  Transmission Date: 20191004
  Serious: Yes (Other)
  Sender: FDA-Public Use
  Company Number: IT-MYLANLABS-2019M1065572

PATIENT
  Age: 41 Year
  Sex: Female

DRUGS (1)
  1. COPEMYL [Suspect]
     Active Substance: GLATIRAMER ACETATE
     Indication: MULTIPLE SCLEROSIS
     Dosage: 40 MILLIGRAM, Q2D
     Route: 058
     Dates: start: 20181101, end: 20190101

REACTIONS (6)
  - Rash [Recovering/Resolving]
  - Injection site rash [Recovering/Resolving]
  - Demyelination [Recovering/Resolving]
  - Lip oedema [Recovering/Resolving]
  - Injection site urticaria [Recovering/Resolving]
  - Oedema [Recovering/Resolving]

NARRATIVE: CASE EVENT DATE: 20181101
